FAERS Safety Report 8586809-1 (Version None)
Quarter: 2012Q3

REPORT INFORMATION
  Report Type: 
  Country: None (occurrence: None)
  Receive Date: 20120810
  Receipt Date: 20120731
  Transmission Date: 20120928
  Serious: Yes (Other)
  Sender: FDA-Public Use
  Company Number: US-ABBOTT-12P-163-0960576-00

PATIENT
  Sex: Female
  Weight: 86.26 kg

DRUGS (4)
  1. IMURAN [Suspect]
     Indication: CROHN'S DISEASE
  2. HUMIRA [Suspect]
     Route: 058
     Dates: start: 20120719, end: 20120719
  3. HUMIRA [Suspect]
     Indication: CROHN'S DISEASE
     Route: 058
     Dates: start: 20120621, end: 20120621
  4. HUMIRA [Suspect]
     Route: 058
     Dates: start: 20120705, end: 20120705

REACTIONS (2)
  - ABSCESS INTESTINAL [None]
  - CROHN'S DISEASE [None]
